FAERS Safety Report 14118105 (Version 1)
Quarter: 2017Q4

REPORT INFORMATION
  Report Type: Spontaneous
  Country: US (occurrence: US)
  Receive Date: 20171023
  Receipt Date: 20171023
  Transmission Date: 20180321
  Serious: No
  Sender: FDA-Public Use
  Company Number: US-ALLERGAN-1674322US

PATIENT
  Sex: Female

DRUGS (1)
  1. LINZESS [Suspect]
     Active Substance: LINACLOTIDE
     Indication: IRRITABLE BOWEL SYNDROME
     Dosage: 145 ?G, UNK
     Route: 048

REACTIONS (5)
  - Off label use [Unknown]
  - Abdominal distension [Unknown]
  - Diarrhoea [Unknown]
  - Discomfort [Unknown]
  - Abdominal pain upper [Unknown]
